FAERS Safety Report 6620174-1 (Version None)
Quarter: 2010Q1

REPORT INFORMATION
  Report Type: 
  Country: None (occurrence: None)
  Receive Date: 20100309
  Receipt Date: 20060105
  Transmission Date: 20100710
  Serious: Yes (Life-Threatening, Hospitalization)
  Sender: FDA-Public Use
  Company Number: HQWYE237406JAN06

PATIENT
  Sex: Female

DRUGS (1)
  1. NEUMEGA [Suspect]
     Indication: THROMBOCYTOPENIA
     Dosage: DAILY; DOSE MODIFIED; DATES OF THERAPY NOT PROVIDED
     Route: 058

REACTIONS (1)
  - PULMONARY OEDEMA [None]
